FAERS Safety Report 9217630 (Version 1)
Quarter: 2013Q2

REPORT INFORMATION
  Report Type: Spontaneous
  Country: GB (occurrence: GB)
  Receive Date: 20130408
  Receipt Date: 20130408
  Transmission Date: 20140414
  Serious: Yes (Other)
  Sender: FDA-Public Use
  Company Number: GB-PFIZER INC-2006089631

PATIENT
  Age: 73 Year
  Sex: Female

DRUGS (6)
  1. IBUPROFEN [Suspect]
     Dosage: 400 MG, 3X/DAY
     Route: 048
     Dates: start: 20060508, end: 20060522
  2. OMEPRAZOLE [Suspect]
     Indication: GASTROOESOPHAGEAL REFLUX DISEASE
     Dosage: 20 MG 1 TIME DAILY
     Route: 048
     Dates: start: 20060511, end: 20060521
  3. CITALOPRAM [Concomitant]
     Indication: DEPRESSION
     Dosage: 20 MG 1 TIME DAILY
     Route: 048
     Dates: start: 20060511
  4. HEPARIN SODIUM [Concomitant]
     Indication: PROPHYLAXIS
     Dosage: 2500 IU (FREQUENCY UNSPECIFIED)
     Route: 058
     Dates: start: 20060515
  5. PARACETAMOL [Concomitant]
     Indication: PAIN
     Dosage: 1 GRAM 4 TIMES DAILY
     Route: 048
     Dates: start: 20060515
  6. PROCHLORPERAZINE [Concomitant]
     Indication: NAUSEA
     Dosage: 5 MG 3 TIMES DAILY
     Route: 048
     Dates: start: 20060508

REACTIONS (3)
  - Liver function test abnormal [Recovering/Resolving]
  - Alanine aminotransferase increased [Recovering/Resolving]
  - Gamma-glutamyltransferase increased [Recovering/Resolving]
